FAERS Safety Report 12728558 (Version 1)
Quarter: 2016Q3

REPORT INFORMATION
  Report Type: Spontaneous
  Country: US (occurrence: US)
  Receive Date: 20160909
  Receipt Date: 20160909
  Transmission Date: 20161109
  Serious: Yes (Hospitalization)
  Sender: FDA-Public Use
  Company Number: US-BAYER-2016-171960

PATIENT
  Age: 31 Year
  Sex: Female

DRUGS (4)
  1. FENTANYL. [Concomitant]
     Active Substance: FENTANYL
  2. MIRENA [Suspect]
     Active Substance: LEVONORGESTREL
     Indication: CONTRACEPTION
     Dosage: 20 MCG/24HR, CONT
     Route: 015
     Dates: start: 20110331, end: 20130611
  3. MIRENA [Suspect]
     Active Substance: LEVONORGESTREL
     Indication: MENORRHAGIA
  4. IBUPROFEN. [Concomitant]
     Active Substance: IBUPROFEN

REACTIONS (5)
  - Medical device pain [None]
  - Device difficult to use [None]
  - Device use issue [None]
  - Abdominal pain [None]
  - Uterine perforation [None]

NARRATIVE: CASE EVENT DATE: 20130509
